FAERS Safety Report 9265659 (Version 1)
Quarter: 2013Q2

REPORT INFORMATION
  Report Type: Spontaneous
  Country: US (occurrence: None)
  Receive Date: 20130501
  Receipt Date: 20130501
  Transmission Date: 20140414
  Serious: No
  Sender: FDA-Public Use
  Company Number: None

PATIENT
  Age: 46 Year
  Sex: Female
  Weight: 56.6 kg

DRUGS (4)
  1. BEVACIZUMAB [Suspect]
  2. OXALIPLATIN [Suspect]
  3. LEUCOVORIN [Suspect]
  4. 5-FLUOROURACIL [Suspect]

REACTIONS (1)
  - Hypokalaemia [None]
